FAERS Safety Report 6519664-1 (Version None)
Quarter: 2009Q4

REPORT INFORMATION
  Report Type: 
  Country: None (occurrence: None)
  Receive Date: 20091228
  Receipt Date: 20091217
  Transmission Date: 20100525
  Serious: Yes (Other)
  Sender: FDA-Public Use
  Company Number: BR-PFIZER INC-2009311635

PATIENT
  Age: 29 Year
  Sex: Female
  Weight: 51 kg

DRUGS (1)
  1. DEPO-PROVERA [Suspect]
     Indication: CONTRACEPTION
     Dosage: 150 MG, EVERY 3 MONTHS
     Route: 030

REACTIONS (14)
  - ABDOMINAL DISTENSION [None]
  - AGITATION [None]
  - ALOPECIA [None]
  - AMENORRHOEA [None]
  - CHEST PAIN [None]
  - DRUG INEFFECTIVE [None]
  - GENITAL DISCHARGE [None]
  - HEART RATE INCREASED [None]
  - NERVOUSNESS [None]
  - STRESS [None]
  - SUPPRESSED LACTATION [None]
  - UNINTENDED PREGNANCY [None]
  - VULVOVAGINAL PAIN [None]
  - WEIGHT DECREASED [None]
